FAERS Safety Report 9908097 (Version 1)
Quarter: 2014Q1

REPORT INFORMATION
  Report Type: Spontaneous
  Country: US (occurrence: None)
  Receive Date: 20140212
  Receipt Date: 20140212
  Transmission Date: 20141002
  Serious: Yes (Other)
  Sender: FDA-Public Use
  Company Number: None

PATIENT
  Sex: Female
  Weight: 87.54 kg

DRUGS (12)
  1. ATENOLOL [Suspect]
     Indication: HYPERTENSION
     Dosage: BY MOUTH
  2. LORAZEPAM [Suspect]
     Indication: ANXIETY
     Dosage: BY MOUTH
  3. ATENOLOL [Concomitant]
  4. CLONIDINE [Concomitant]
  5. LORATADINE [Concomitant]
  6. LORAZEPAM [Concomitant]
  7. NEXIUM [Concomitant]
  8. SERTRALINE [Concomitant]
  9. VALSARTAN -HYDROCHLOROTHIAZIDE [Concomitant]
  10. VIT B12 [Concomitant]
  11. MULTIVITAMIN - MINERAL [Concomitant]
  12. BIOTIN [Concomitant]

REACTIONS (2)
  - Pruritus [None]
  - Alopecia [None]
